FAERS Safety Report 13716593 (Version 1)
Quarter: 2017Q3

REPORT INFORMATION
  Report Type: Spontaneous
  Country: None (occurrence: US)
  Receive Date: 20170703
  Receipt Date: 20170703
  Transmission Date: 20171127
  Serious: Yes (Hospitalization)
  Sender: FDA-Public Use
  Company Number: None

PATIENT
  Age: 55 Year
  Sex: Female

DRUGS (1)
  1. COPAXONE [Suspect]
     Active Substance: GLATIRAMER ACETATE
     Indication: MULTIPLE SCLEROSIS
     Dosage: 1 INJECTION EVERY 3 DAYS SQ
     Route: 058
     Dates: start: 20140101

REACTIONS (2)
  - Fall [None]
  - Femur fracture [None]

NARRATIVE: CASE EVENT DATE: 20170602
